FAERS Safety Report 7361288-0 (Version None)
Quarter: 2011Q1

REPORT INFORMATION
  Report Type: 
  Country: None (occurrence: None)
  Receive Date: 20110318
  Receipt Date: 20110309
  Transmission Date: 20110831
  Serious: Yes (Hospitalization)
  Sender: FDA-Public Use
  Company Number: A0890292A

PATIENT
  Age: 72 Year
  Sex: Female
  Weight: 62 kg

DRUGS (9)
  1. SPIRONOLACTONE [Concomitant]
  2. VENTOLIN [Concomitant]
  3. SIMVASTATIN [Concomitant]
  4. THYROID MEDICATION [Concomitant]
  5. FUROSEMIDE [Concomitant]
  6. SPIRIVA [Concomitant]
  7. ADVAIR DISKUS 100/50 [Suspect]
     Indication: CHRONIC OBSTRUCTIVE PULMONARY DISEASE
     Route: 055
     Dates: start: 20060101
  8. LEXAPRO [Concomitant]
  9. SINGULAIR [Concomitant]

REACTIONS (6)
  - INFECTION [None]
  - CANDIDIASIS [None]
  - HYPOXIA [None]
  - PNEUMONIA [None]
  - WHITE BLOOD CELL COUNT INCREASED [None]
  - BLINDNESS [None]
